FAERS Safety Report 5417835-9 (Version None)
Quarter: 2007Q3

REPORT INFORMATION
  Report Type: 
  Country: None (occurrence: None)
  Receive Date: 20070817
  Receipt Date: 20070809
  Transmission Date: 20080115
  Serious: Yes (Other)
  Sender: FDA-Public Use
  Company Number: PHBS2007BR13256

PATIENT
  Age: 24 Year
  Sex: Female
  Weight: 107 kg

DRUGS (1)
  1. PARLODEL [Suspect]
     Indication: LACTATION DISORDER
     Dosage: 2.5 MG/DAY
     Route: 048
     Dates: start: 20070701

REACTIONS (4)
  - DRUG INEFFECTIVE [None]
  - MENOMETRORRHAGIA [None]
  - NAUSEA [None]
  - SOMNOLENCE [None]
